FAERS Safety Report 19217957 (Version 1)
Quarter: 2021Q2

REPORT INFORMATION
  Report Type: Spontaneous
  Country: US (occurrence: US)
  Receive Date: 20210430
  Receipt Date: 20210430
  Transmission Date: 20210717
  Serious: Yes (Life-Threatening, Other)
  Sender: FDA-Public Use
  Company Number: None

PATIENT
  Age: 38 Year
  Sex: Female
  Weight: 51.75 kg

DRUGS (1)
  1. DOMPERIDONE [Suspect]
     Active Substance: DOMPERIDONE
     Indication: LACTATION DISORDER
     Route: 048
     Dates: start: 20181224, end: 20190518

REACTIONS (8)
  - Withdrawal syndrome [None]
  - Cognitive disorder [None]
  - Anxiety [None]
  - Visual impairment [None]
  - Confusional state [None]
  - Insomnia [None]
  - Agitation [None]
  - Suicidal ideation [None]

NARRATIVE: CASE EVENT DATE: 20190518
